FAERS Safety Report 20814016 (Version 5)
Quarter: 2022Q4

REPORT INFORMATION
  Report Type: Report from Study
  Country: US (occurrence: US)
  Receive Date: 20220511
  Receipt Date: 20221116
  Transmission Date: 20230113
  Serious: Yes (Other)
  Sender: FDA-Public Use
  Company Number: US-BIOVITRUM-2022US05981

PATIENT
  Age: 59 Year
  Sex: Male

DRUGS (2)
  1. KINERET [Suspect]
     Active Substance: ANAKINRA
     Indication: Still^s disease
     Dates: start: 202204
  2. KINERET [Suspect]
     Active Substance: ANAKINRA
     Dates: start: 20220420

REACTIONS (16)
  - Renal failure [Unknown]
  - Haemorrhoids [Unknown]
  - Anaemia [Unknown]
  - Myalgia [Unknown]
  - Sciatica [Unknown]
  - Serum ferritin increased [Unknown]
  - Pain [Unknown]
  - Paraesthesia [Unknown]
  - Pain in extremity [Unknown]
  - Serum ferritin decreased [Unknown]
  - Blood pressure increased [Unknown]
  - Anxiety [Unknown]
  - Injection site pain [Unknown]
  - Injection site bruising [Unknown]
  - Product dose omission issue [Unknown]
  - Off label use [Unknown]

NARRATIVE: CASE EVENT DATE: 20220401
